FAERS Safety Report 25174276 (Version 1)
Quarter: 2025Q2

REPORT INFORMATION
  Report Type: Spontaneous
  Country: US (occurrence: None)
  Receive Date: 20250408
  Receipt Date: 20250408
  Transmission Date: 20250717
  Serious: Yes (Other)
  Sender: FDA-CTU
  Company Number: None

PATIENT
  Age: 42 Year
  Sex: Female
  Weight: 121 kg

DRUGS (6)
  1. KESIMPTA [Suspect]
     Active Substance: OFATUMUMAB
     Indication: Multiple sclerosis
     Route: 058
     Dates: start: 20250213
  2. HYDROCHLOROTHIAZIDE [Concomitant]
     Active Substance: HYDROCHLOROTHIAZIDE
     Dates: start: 20220601
  3. LEVOTHYROXINE [Concomitant]
     Active Substance: LEVOTHYROXINE
     Dates: start: 20180101
  4. TIZANIDINE [Concomitant]
     Active Substance: TIZANIDINE
     Dates: start: 20250401
  5. melatonin 1.5mg [Concomitant]
  6. Vitamin D3 5,000iu [Concomitant]

REACTIONS (1)
  - Sunburn [None]

NARRATIVE: CASE EVENT DATE: 20250407
